FAERS Safety Report 8034529-4 (Version None)
Quarter: 2012Q1

REPORT INFORMATION
  Report Type: 
  Country: None (occurrence: None)
  Receive Date: 20120110
  Receipt Date: 20111103
  Transmission Date: 20120608
  Serious: Yes (Hospitalization, Other)
  Sender: FDA-Public Use
  Company Number: US-PFIZER INC-2006002022

PATIENT
  Sex: Female
  Weight: 63.5 kg

DRUGS (20)
  1. DIOVAN HCT [Concomitant]
  2. ALBUTEROL [Concomitant]
  3. LASIX [Concomitant]
  4. LOVAZA [Concomitant]
  5. IBANDRONATE SODIUM [Concomitant]
     Dosage: ONCE A MONTH
  6. VITAMIN C [Concomitant]
  7. CITRACAL + D [Concomitant]
  8. LYRICA [Suspect]
  9. NASONEX [Concomitant]
  10. VITAMIN B-12 [Concomitant]
  11. XOPENEX [Concomitant]
     Dosage: AS AND WHEN REQUIRED
  12. PULMICORT [Concomitant]
     Dosage: AS AND WHEN REQUIRED
  13. CLINDAMYCIN [Concomitant]
     Dosage: AS AND WHEN REQUIRED
  14. NEXIUM [Concomitant]
  15. EPINASTINE [Concomitant]
  16. PLAVIX [Concomitant]
  17. LIPITOR [Suspect]
     Indication: BLOOD CHOLESTEROL INCREASED
     Dosage: 20 MG, 1X/DAY
     Dates: start: 19910101
  18. EVISTA [Concomitant]
  19. DIOVAN [Concomitant]
  20. ULTRACET [Concomitant]

REACTIONS (27)
  - NAUSEA [None]
  - EPISTAXIS [None]
  - ARTHRITIS [None]
  - FIBROMYALGIA [None]
  - HYPOAESTHESIA [None]
  - GLUCOSE TOLERANCE IMPAIRED [None]
  - VERTIGO [None]
  - FALL [None]
  - OSTEOPOROSIS [None]
  - INJURY [None]
  - ASTHMA [None]
  - DIZZINESS [None]
  - ANAEMIA [None]
  - BODY HEIGHT DECREASED [None]
  - LIGAMENT RUPTURE [None]
  - CEREBROVASCULAR ACCIDENT [None]
  - HYPERSENSITIVITY [None]
  - TRANSIENT ISCHAEMIC ATTACK [None]
  - VOMITING [None]
  - GASTRIC DISORDER [None]
  - CHEST PAIN [None]
  - DEHYDRATION [None]
  - BLOOD POTASSIUM DECREASED [None]
  - HYPERTENSION [None]
  - FOOD POISONING [None]
  - NASOPHARYNGITIS [None]
  - JOINT INJURY [None]
